FAERS Safety Report 4893794-2 (Version None)
Quarter: 2006Q1

REPORT INFORMATION
  Report Type: 
  Country: None (occurrence: None)
  Receive Date: 20060127
  Receipt Date: 20060124
  Transmission Date: 20060701
  Serious: Yes (Death)
  Sender: FDA-Public Use
  Company Number: 2006AC00165

PATIENT
  Age: 24 Year
  Sex: Female

DRUGS (1)
  1. PROPOFOL [Suspect]
     Indication: CONVULSION

REACTIONS (3)
  - BRADYARRHYTHMIA [None]
  - HYPOTENSION [None]
  - METABOLIC ACIDOSIS [None]
